FAERS Safety Report 15831168 (Version 9)
Quarter: 2020Q3

REPORT INFORMATION
  Report Type: Report from Study
  Country: None (occurrence: US)
  Receive Date: 20190116
  Receipt Date: 20200720
  Transmission Date: 20201102
  Serious: Yes (Other)
  Sender: FDA-Public Use
  Company Number: US-ABBVIE-19K-163-2624566-00

PATIENT
  Sex: Female
  Weight: 69.01 kg

DRUGS (5)
  1. FOLIC ACID. [Concomitant]
     Active Substance: FOLIC ACID
     Indication: PRODUCT USED FOR UNKNOWN INDICATION
  2. HUMIRA [Suspect]
     Active Substance: ADALIMUMAB
     Route: 058
  3. HUMIRA [Suspect]
     Active Substance: ADALIMUMAB
     Route: 058
  4. HUMIRA [Suspect]
     Active Substance: ADALIMUMAB
     Indication: RHEUMATOID ARTHRITIS
     Route: 058
     Dates: start: 2002
  5. METHOTREXATE. [Concomitant]
     Active Substance: METHOTREXATE
     Indication: RHEUMATOID ARTHRITIS

REACTIONS (20)
  - Cataract [Recovered/Resolved]
  - Arthralgia [Unknown]
  - Peripheral swelling [Unknown]
  - Fat tissue increased [Not Recovered/Not Resolved]
  - Type 2 diabetes mellitus [Not Recovered/Not Resolved]
  - Foot deformity [Unknown]
  - Joint swelling [Unknown]
  - Arthropathy [Unknown]
  - Irritable bowel syndrome [Not Recovered/Not Resolved]
  - Osteoarthritis [Unknown]
  - Visual acuity reduced [Recovered/Resolved]
  - Thyroidectomy [Unknown]
  - Osteoporosis [Not Recovered/Not Resolved]
  - Systemic lupus erythematosus [Unknown]
  - Glaucoma [Unknown]
  - Intervertebral disc degeneration [Not Recovered/Not Resolved]
  - Hypertension [Not Recovered/Not Resolved]
  - Hernia [Unknown]
  - Mass [Unknown]
  - Illness [Unknown]

NARRATIVE: CASE EVENT DATE: 2015
